FAERS Safety Report 7206271-0 (Version None)
Quarter: 2010Q4

REPORT INFORMATION
  Report Type: 
  Country: None (occurrence: None)
  Receive Date: 20101217
  Receipt Date: 20101203
  Transmission Date: 20110411
  Serious: Yes (Other)
  Sender: FDA-Public Use
  Company Number: 012147

PATIENT

DRUGS (2)
  1. PLETAL [Suspect]
     Indication: PRODUCT USED FOR UNKNOWN INDICATION
     Dosage: ORAL
     Route: 048
  2. WARFARIN (WARFARIN POTASSIUM) [Concomitant]

REACTIONS (1)
  - DEEP VEIN THROMBOSIS [None]
